FAERS Safety Report 15403242 (Version 1)
Quarter: 2018Q4

REPORT INFORMATION
  Report Type: Spontaneous
  Country: JP (occurrence: JP)
  Receive Date: 20180919
  Receipt Date: 20180919
  Transmission Date: 20190204
  Serious: Yes (Other)
  Sender: FDA-Public Use
  Company Number: JP-PFIZER INC-2018368761

PATIENT
  Age: 62 Year
  Sex: Male

DRUGS (4)
  1. DACARBAZINE. [Suspect]
     Active Substance: DACARBAZINE
     Indication: RICHTER^S SYNDROME
     Dosage: UNK (TWO COURSES)
     Dates: start: 201502
  2. VINBLASTINE [Suspect]
     Active Substance: VINBLASTINE
     Indication: RICHTER^S SYNDROME
     Dosage: UNK (TWO COURSES)
     Dates: start: 201502
  3. DOXORUBICIN HCL [Suspect]
     Active Substance: DOXORUBICIN HYDROCHLORIDE
     Indication: RICHTER^S SYNDROME
     Dosage: UNK (TWO COURSES)
     Dates: start: 201502
  4. BLEOMYCIN [Suspect]
     Active Substance: BLEOMYCIN SULFATE
     Indication: RICHTER^S SYNDROME
     Dosage: UNK (TWO COURSES)
     Dates: start: 201502

REACTIONS (1)
  - Febrile neutropenia [Unknown]

NARRATIVE: CASE EVENT DATE: 201502
